FAERS Safety Report 7378986-5 (Version None)
Quarter: 2011Q1

REPORT INFORMATION
  Report Type: 
  Country: None (occurrence: None)
  Receive Date: 20110328
  Receipt Date: 20110315
  Transmission Date: 20110831
  Serious: Yes (Other)
  Sender: FDA-Public Use
  Company Number: US-ELI_LILLY_AND_COMPANY-US201003000321

PATIENT
  Sex: Female
  Weight: 43.084 kg

DRUGS (6)
  1. ASPIRIN [Concomitant]
     Dosage: 8 MG, DAILY (1/D)
  2. FORTEO [Suspect]
     Dosage: 20 UG, DAILY (1/D)
     Dates: end: 20110129
  3. ANTIHYPERTENSIVES [Concomitant]
     Indication: HYPERTENSION
     Dosage: UNK, UNKNOWN
  4. FORTEO [Suspect]
     Indication: OSTEOPOROSIS
     Dosage: 20 UG, DAILY (1/D)
     Route: 058
     Dates: start: 20100127
  5. NORVASC [Concomitant]
     Dosage: 5 MG, DAILY (1/D)
  6. VITAMIN D [Concomitant]
     Dosage: 50000 U, WEEKLY (1/W)

REACTIONS (13)
  - CARDIAC VALVE DISEASE [None]
  - CONSTIPATION [None]
  - DYSPNOEA [None]
  - INTENTIONAL DRUG MISUSE [None]
  - DIZZINESS [None]
  - CARDIOVASCULAR DISORDER [None]
  - HYPOTENSION [None]
  - ORTHOSTATIC HYPOTENSION [None]
  - PULMONARY OEDEMA [None]
  - DYSGEUSIA [None]
  - JOINT SWELLING [None]
  - DRUG DOSE OMISSION [None]
  - HYPERTENSION [None]
